FAERS Safety Report 19046838 (Version 1)
Quarter: 2021Q1

REPORT INFORMATION
  Report Type: Report from Study
  Country: None (occurrence: US)
  Receive Date: 20210322
  Receipt Date: 20210322
  Transmission Date: 20210420
  Serious: Yes (Other)
  Sender: FDA-Public Use
  Company Number: US-ABBVIE-21K-163-3817632-00

PATIENT
  Sex: Female

DRUGS (3)
  1. HUMIRA [Suspect]
     Active Substance: ADALIMUMAB
     Indication: PRODUCT USED FOR UNKNOWN INDICATION
     Route: 058
  2. RINVOQ [Suspect]
     Active Substance: UPADACITINIB
     Indication: RHEUMATOID ARTHRITIS
     Route: 048
  3. MODERNA COVID?19 VACCINE [Suspect]
     Active Substance: CX-024414
     Indication: COVID-19 IMMUNISATION
     Dosage: MODERNA
     Route: 030

REACTIONS (15)
  - Arthritis [Recovered/Resolved]
  - Headache [Recovered/Resolved]
  - Nausea [Recovered/Resolved]
  - Drug ineffective [Recovered/Resolved]
  - Pain in extremity [Recovered/Resolved]
  - Raynaud^s phenomenon [Unknown]
  - Vaccination site pain [Recovered/Resolved]
  - Intervertebral disc protrusion [Recovered/Resolved]
  - Influenza like illness [Recovered/Resolved]
  - Plasma cell myeloma [Not Recovered/Not Resolved]
  - Systemic lupus erythematosus [Unknown]
  - Swelling [Recovering/Resolving]
  - Back disorder [Not Recovered/Not Resolved]
  - Fatigue [Recovered/Resolved]
  - Arthralgia [Recovering/Resolving]
